FAERS Safety Report 7462885-4 (Version None)
Quarter: 2011Q2

REPORT INFORMATION
  Report Type: 
  Country: None (occurrence: None)
  Receive Date: 20110506
  Receipt Date: 20091204
  Transmission Date: 20111010
  Serious: Yes (Other)
  Sender: FDA-Public Use
  Company Number: US-BAYER-2011-007146

PATIENT
  Age: 44 Year
  Sex: Male
  Weight: 88.435 kg

DRUGS (16)
  1. ESMOLOL [Concomitant]
     Dosage: 20 MG, UNK
     Route: 042
     Dates: start: 20061220
  2. HEPARIN [Concomitant]
     Dosage: UNK
     Route: 042
     Dates: start: 20061220
  3. TRASYLOL [Suspect]
     Dosage: 200 ML, PUMP PRIME DOSE
     Route: 042
     Dates: start: 20061220, end: 20061220
  4. MILRINONE [Concomitant]
     Dosage: UNK
     Route: 042
     Dates: start: 20061220
  5. FOSINOPRIL SODIUM [Concomitant]
     Dosage: UNK
     Route: 048
     Dates: start: 20060101
  6. INSULIN [Concomitant]
     Dosage: UNK
     Route: 042
     Dates: start: 20061220
  7. ANCEF [Concomitant]
     Dosage: 2 G, UNK
     Route: 042
     Dates: start: 20061220
  8. AMIODARONE [Concomitant]
     Dosage: UNK
     Route: 042
     Dates: start: 20061220
  9. VERSED [Concomitant]
     Dosage: 66 MG, UNK
     Route: 042
     Dates: start: 20061220
  10. ROCAIN [Concomitant]
     Route: 042
  11. PROPOFOL [Concomitant]
     Dosage: 30 MG, UNK
     Route: 042
     Dates: start: 20061220
  12. TRASYLOL [Suspect]
     Dosage: 50ML/HR, INFUSION
     Route: 042
     Dates: start: 20061220, end: 20061220
  13. FENTANYL [Concomitant]
     Dosage: 30 MG, UNK
     Route: 042
     Dates: start: 20061220
  14. TRASYLOL [Suspect]
     Indication: CORONARY ARTERY BYPASS
     Dosage: 1 ML, TEST DOSE
     Route: 042
     Dates: start: 20061220, end: 20061220
  15. EPINEPHRINE [Concomitant]
     Dosage: UNK
     Route: 042
     Dates: start: 20061220
  16. PROTAMINE SULFATE [Concomitant]
     Dosage: UNK
     Route: 042
     Dates: start: 20061220

REACTIONS (4)
  - PAIN [None]
  - RENAL FAILURE ACUTE [None]
  - INJURY [None]
  - RENAL FAILURE [None]
